FAERS Safety Report 7977495-X (Version None)
Quarter: 2011Q4

REPORT INFORMATION
  Report Type: 
  Country: None (occurrence: None)
  Receive Date: 20111214
  Receipt Date: 20111118
  Transmission Date: 20120403
  Serious: No
  Sender: FDA-Public Use
  Company Number: US-AMGEN-USASP2011050186

PATIENT
  Age: 68 Year
  Sex: Female
  Weight: 56.236 kg

DRUGS (1)
  1. ENBREL [Suspect]
     Indication: RHEUMATOID ARTHRITIS
     Dosage: 25 MG, 2 TIMES/WK
     Route: 058
     Dates: start: 20010101

REACTIONS (4)
  - INCORRECT STORAGE OF DRUG [None]
  - INJURY ASSOCIATED WITH DEVICE [None]
  - ARTHRALGIA [None]
  - RHEUMATOID ARTHRITIS [None]
